FAERS Safety Report 7384196-8 (Version None)
Quarter: 2011Q1

REPORT INFORMATION
  Report Type: 
  Country: None (occurrence: None)
  Receive Date: 20110330
  Receipt Date: 20110323
  Transmission Date: 20110831
  Serious: Yes (Hospitalization)
  Sender: FDA-Public Use
  Company Number: B0709454A

PATIENT
  Sex: Male

DRUGS (1)
  1. MALARONE [Suspect]
     Indication: PROPHYLAXIS
     Route: 065
     Dates: start: 20110305, end: 20110320

REACTIONS (3)
  - HALLUCINATION [None]
  - ANXIETY [None]
  - ABNORMAL BEHAVIOUR [None]
